FAERS Safety Report 9515963 (Version 3)
Quarter: 2013Q3

REPORT INFORMATION
  Report Type: Spontaneous
  Country: PT (occurrence: PT)
  Receive Date: 20130911
  Receipt Date: 20130924
  Transmission Date: 20140515
  Serious: Yes (Other)
  Sender: FDA-Public Use
  Company Number: PT-VERTEX PHARMACEUTICALS INC-2013-009426

PATIENT
  Age: 69 Year
  Sex: Male
  Weight: 80 kg

DRUGS (3)
  1. INCIVO [Suspect]
     Indication: HEPATITIS C
     Dosage: 1125 MG, BID (3 X 375 MG EVERY 12 HOURS)
     Route: 048
     Dates: start: 20130902, end: 20130904
  2. PEG A [Concomitant]
     Dosage: UNK
     Route: 065
     Dates: start: 20130902
  3. RIBAVIRIN [Concomitant]
     Dosage: UNK
     Route: 065
     Dates: start: 20130902

REACTIONS (1)
  - Syncope [Recovered/Resolved]
